FAERS Safety Report 9910093 (Version 1)
Quarter: 2014Q1

REPORT INFORMATION
  Report Type: Spontaneous
  Country: US (occurrence: None)
  Receive Date: 20140212
  Receipt Date: 20140212
  Transmission Date: 20141002
  Serious: Yes (Other)
  Sender: FDA-Public Use
  Company Number: 001659836A

PATIENT
  Age: 77 Year
  Sex: Female

DRUGS (2)
  1. MEANINGFUL BEAUTY ANTIOXIDANT DAY CREME WITH SFF 20 [Suspect]
     Dosage: ONCE DAILY DERMAL
     Dates: start: 20140106
  2. SKIN BRIGHTENING DECOLLETE AND NECK TREATMENT SPF 15? [Suspect]
     Dosage: ONCE DAILY DERMAL
     Dates: start: 20140106

REACTIONS (3)
  - Urticaria [None]
  - Pruritus [None]
  - Dysphonia [None]
